FAERS Safety Report 18685323 (Version 1)
Quarter: 2020Q4

REPORT INFORMATION
  Report Type: Spontaneous
  Country: GB (occurrence: GB)
  Receive Date: 20201231
  Receipt Date: 20201231
  Transmission Date: 20210114
  Serious: Yes (Disabling)
  Sender: FDA-Public Use
  Company Number: GB-TEVA-2020-GB-1863814

PATIENT
  Age: 75 Year
  Sex: Female
  Weight: 124 kg

DRUGS (19)
  1. COAL TAR. [Concomitant]
     Active Substance: COAL TAR
     Dosage: USE AS DIRECTED
     Dates: start: 20130408, end: 20200910
  2. FUROSEMIDE. [Concomitant]
     Active Substance: FUROSEMIDE
     Dosage: 1 DOSAGE FORMS DAILY; EACH MORNING (WATER TABLET).
     Dates: start: 20200910
  3. ACICLOVIR [Suspect]
     Active Substance: ACYCLOVIR
     Indication: ANTIVIRAL TREATMENT
     Dosage: 4000 MG
     Dates: start: 20201127
  4. E45 [Concomitant]
     Active Substance: LANOLIN\LIGHT MINERAL OIL\PARAFFIN
     Dosage: APPLY FREQUENTLY QUICKLY THILNLY SEVERAL TIMES.
     Dates: start: 20190320
  5. MOXONIDINE [Concomitant]
     Active Substance: MOXONIDINE
     Dosage: 1 DOSAGE FORMS DAILY; EACH MORNING
     Dates: start: 20200224
  6. ORAMORPH [Concomitant]
     Active Substance: MORPHINE SULFATE
     Dosage: 2.5 ML ,TAKE FOR BREAKTHROUGH PAIN.
     Dates: start: 20190930
  7. LACTULOSE. [Concomitant]
     Active Substance: LACTULOSE
     Indication: CONSTIPATION
     Dosage: TAKE 10-15ML TWICE A DAY
     Dates: start: 20200715
  8. DIAZEPAM. [Concomitant]
     Active Substance: DIAZEPAM
     Dosage: 1 DOSAGE FORMS ,AS DIRECTED (FOR SHORT-TER.
     Dates: start: 20200917, end: 20200922
  9. DICLOFENAC DIETHYLAMINE [Concomitant]
     Active Substance: DICLOFENAC DIETHYLAMINE
     Dosage: 3 DOSAGE FORMS ,APPLY SPARINGLY ONLY WHERE NE.
     Dates: start: 20140402
  10. FUSIDIC ACID [Concomitant]
     Active Substance: FUSIDIC ACID
     Dosage: 3 DOSAGE FORMS ,APPLY TO THE AFFECTED AREA
     Dates: start: 20201127, end: 20201204
  11. DOMPERIDONE [Concomitant]
     Active Substance: DOMPERIDONE
     Dosage: 2 DOSAGE FORMS
     Dates: start: 20100716
  12. MATRIFEN [Concomitant]
     Active Substance: FENTANYL
     Dosage: 1 DOSAGE FORMS ,APPLY PATCH TO HELP CONTROL
     Dates: start: 20180212
  13. DOSULEPIN HYDROCHLORIDE [Concomitant]
     Active Substance: DOTHIEPIN HYDROCHLORIDE
     Dosage: UNIT DOSE :3 DOSAGE FORMS ,1 IN THE MORNING, 2 AT NIGHT
     Dates: start: 20200224
  14. CASSIA [Concomitant]
     Dosage: 2 DOSAGE FORMS DAILY; AT NIGHT TO RELIEVE THE SYMPTOMS OF CO.
     Dates: start: 20181003
  15. BENDROFLUMETHIAZIDE [Concomitant]
     Active Substance: BENDROFLUMETHIAZIDE
     Dosage: 1 DOSAGE FORMS DAILY; EACH MORNING
     Dates: start: 20200224, end: 20200910
  16. ENALAPRIL [Concomitant]
     Active Substance: ENALAPRIL
     Dosage: 4 DOSAGE FORMS
     Dates: start: 20200224
  17. PARACETAMOL [Concomitant]
     Active Substance: ACETAMINOPHEN
     Dosage: TAKE ONE OR TWO UP TO FOUR TIMES A DAY
     Dates: start: 20170509
  18. FLUVASTATIN [Concomitant]
     Active Substance: FLUVASTATIN SODIUM
     Dosage: 1 DOSAGE FORMS DAILY; EARLY EVENING
     Dates: start: 20120213
  19. LANSOPRAZOLE. [Concomitant]
     Active Substance: LANSOPRAZOLE
     Dosage: 1 DOSAGE FORMS
     Dates: start: 20200224

REACTIONS (1)
  - Acute kidney injury [Recovered/Resolved]

NARRATIVE: CASE EVENT DATE: 20201208
